FAERS Safety Report 9447431 (Version 1)
Quarter: 2013Q3

REPORT INFORMATION
  Report Type: Spontaneous
  Country: DE (occurrence: None)
  Receive Date: 20130805
  Receipt Date: 20130805
  Transmission Date: 20140515
  Serious: Yes (Other)
  Sender: FDA-Public Use
  Company Number: USA/GER/13/0033876

PATIENT
  Age: 42 Year
  Sex: Male

DRUGS (2)
  1. CLOPIDOGREL (CLOPIDOGREL) [Suspect]
  2. ASPIRIN (ACETYLSALICYLIC ACID) [Suspect]

REACTIONS (4)
  - Hemiparesis [None]
  - Cerebral haemorrhage [None]
  - Intraventricular haemorrhage [None]
  - Hydrocephalus [None]
